FAERS Safety Report 4583666-5 (Version None)
Quarter: 2005Q1

REPORT INFORMATION
  Report Type: 
  Country: None (occurrence: None)
  Receive Date: 20050125
  Receipt Date: 20041007
  Transmission Date: 20050727
  Serious: No
  Sender: FDA-Public Use
  Company Number: USA041080572

PATIENT
  Sex: Female

DRUGS (1)
  1. FORTEO [Suspect]
     Dates: start: 20040101, end: 20040101

REACTIONS (4)
  - CHEST DISCOMFORT [None]
  - DIZZINESS [None]
  - MUSCULOSKELETAL DISCOMFORT [None]
  - NAUSEA [None]
